FAERS Safety Report 7687700-5 (Version None)
Quarter: 2011Q3

REPORT INFORMATION
  Report Type: 
  Country: None (occurrence: None)
  Receive Date: 20110817
  Receipt Date: 20110727
  Transmission Date: 20111222
  Serious: No
  Sender: FDA-Public Use
  Company Number: US-BAYER-2011-054414

PATIENT
  Age: 61 Year
  Sex: Male

DRUGS (3)
  1. IBUPROFEN [Concomitant]
  2. INTERFERON BETA-1B [Suspect]
     Dosage: 6 MIU, UNK
     Route: 058
     Dates: start: 20110519
  3. INTERFERON BETA-1B [Suspect]
     Indication: MULTIPLE SCLEROSIS
     Dosage: UNK
     Dates: start: 19981102, end: 20020301

REACTIONS (3)
  - MALAISE [None]
  - INJECTION SITE PAIN [None]
  - INFLUENZA LIKE ILLNESS [None]
